FAERS Safety Report 24336559 (Version 2)
Quarter: 2024Q3

REPORT INFORMATION
  Report Type: Spontaneous
  Country: BR (occurrence: BR)
  Receive Date: 20240919
  Receipt Date: 20240930
  Transmission Date: 20241016
  Serious: Yes (Other)
  Sender: CELLTRION
  Company Number: BR-CELLTRION INC.-2023BR005276

PATIENT

DRUGS (3)
  1. INFLIXIMAB [Suspect]
     Active Substance: INFLIXIMAB
     Indication: Ankylosing spondylitis
     Dosage: 4 AMPOULES EVERY 2 MONTHS
     Route: 042
     Dates: start: 20221018
  2. INFLIXIMAB [Suspect]
     Active Substance: INFLIXIMAB
     Dosage: 4 AMPOULES, EVERY 2 MONTHS
     Route: 042
     Dates: start: 202408
  3. BRAMICAR [Concomitant]
     Indication: Hypertension
     Dosage: 1 PILL A DAY, START DATE: 2 YEARS AGO
     Route: 048

REACTIONS (2)
  - Renal impairment [Unknown]
  - Inappropriate schedule of product administration [Unknown]
